FAERS Safety Report 13249674 (Version 1)
Quarter: 2017Q1

REPORT INFORMATION
  Report Type: Spontaneous
  Country: US (occurrence: US)
  Receive Date: 20170218
  Receipt Date: 20170218
  Transmission Date: 20170428
  Serious: No
  Sender: FDA-Public Use
  Company Number: US-ALLERGAN-1671796US

PATIENT
  Sex: Female

DRUGS (1)
  1. RESTASIS [Suspect]
     Active Substance: CYCLOSPORINE
     Indication: DRY EYE

REACTIONS (6)
  - Dry eye [Unknown]
  - Medication error [Unknown]
  - Decreased interest [Unknown]
  - Expired product administered [Unknown]
  - Confusional state [Unknown]
  - Drug dose omission [Unknown]
